FAERS Safety Report 14075084 (Version 4)
Quarter: 2018Q1

REPORT INFORMATION
  Report Type: Report from Study
  Country: US (occurrence: US)
  Receive Date: 20171010
  Receipt Date: 20180209
  Transmission Date: 20180508
  Serious: Yes (Other)
  Sender: FDA-Public Use
  Company Number: US-ACTELION-A-US2017-152680

PATIENT
  Age: 84 Year
  Sex: Male
  Weight: 106.58 kg

DRUGS (3)
  1. WARFARIN [Concomitant]
     Active Substance: WARFARIN
  2. TRACLEER [Suspect]
     Active Substance: BOSENTAN
     Indication: PULMONARY ARTERIAL HYPERTENSION
     Dosage: 125 MG, BID
     Route: 048
  3. DILTIAZEM. [Concomitant]
     Active Substance: DILTIAZEM

REACTIONS (7)
  - Fatigue [Unknown]
  - Pulmonary congestion [Unknown]
  - Tracheostomy infection [Unknown]
  - Drug dose omission [Unknown]
  - Kidney infection [Unknown]
  - Infection [Unknown]
  - Bronchitis [Unknown]
